FAERS Safety Report 9628918 (Version 2)
Quarter: 2014Q1

REPORT INFORMATION
  Report Type: Report from Study
  Country: DE (occurrence: DE)
  Receive Date: 20131017
  Receipt Date: 20140206
  Transmission Date: 20141002
  Serious: Yes (Death, Hospitalization)
  Sender: FDA-Public Use
  Company Number: DE-TEVA-437705GER

PATIENT
  Sex: Male
  Weight: 58.5 kg

DRUGS (10)
  1. G-CSF (TEVAGRASTIM/RATIOGRASTIM) [Suspect]
     Indication: LEUKOPENIA
     Route: 058
     Dates: start: 20130720, end: 20131002
  2. CYCLOPHOSPHAMID [Concomitant]
     Indication: B-CELL LYMPHOMA
     Dosage: 1300 MG/M2 DAILY;
     Dates: start: 20130710, end: 20130819
  3. DOXORUBICIN [Concomitant]
     Indication: B-CELL LYMPHOMA
     Dosage: 84 MG/M2 DAILY;
     Dates: start: 20130710, end: 20130819
  4. VINCRISTIN [Concomitant]
     Indication: B-CELL LYMPHOMA
     Dosage: 2 MG/M2 DAILY;
     Dates: start: 20130710, end: 20130819
  5. PREDNISON [Concomitant]
     Indication: B-CELL LYMPHOMA
     Dosage: 100 MG/M2 DAILY;
     Dates: start: 20130709, end: 20130819
  6. RITUXIMAB [Concomitant]
     Indication: B-CELL LYMPHOMA
     Dosage: 630 MG/M2 DAILY;
     Dates: start: 20130709, end: 20130819
  7. RITUXIMAB [Concomitant]
     Dosage: 615 MG/M2 DAILY;
     Dates: start: 20130920, end: 20130920
  8. CISPLATIN [Concomitant]
     Indication: B-CELL LYMPHOMA
     Dosage: 164 MG/M2 DAILY;
     Dates: start: 20130920, end: 20130920
  9. CYTARABINE [Concomitant]
     Indication: B-CELL LYMPHOMA
     Dosage: 3280 MG/M2 DAILY;
     Dates: start: 20130921, end: 20130922
  10. LOPERAMIDE [Concomitant]
     Indication: DIARRHOEA
     Route: 048
     Dates: start: 20130930, end: 20131002

REACTIONS (1)
  - Multi-organ failure [Fatal]
